FAERS Safety Report 10004241 (Version 1)
Quarter: 2014Q1

REPORT INFORMATION
  Report Type: Spontaneous
  Country: US (occurrence: US)
  Receive Date: 20140312
  Receipt Date: 20140312
  Transmission Date: 20141002
  Serious: Yes (Other)
  Sender: FDA-Public Use
  Company Number: US-PFIZER INC-2014070871

PATIENT
  Sex: Male

DRUGS (2)
  1. VARENICLINE TARTRATE [Suspect]
     Indication: SMOKING CESSATION THERAPY
     Dosage: UNK
     Dates: start: 2011
  2. IBUPROFEN [Concomitant]
     Indication: PAIN
     Dosage: UNK

REACTIONS (3)
  - Hallucination, auditory [Unknown]
  - Nervousness [Unknown]
  - Feeling abnormal [Unknown]
